FAERS Safety Report 6833563-7 (Version None)
Quarter: 2010Q3

REPORT INFORMATION
  Report Type: 
  Country: None (occurrence: None)
  Receive Date: 20100712
  Receipt Date: 20070326
  Transmission Date: 20110219
  Serious: No
  Sender: FDA-Public Use
  Company Number: US-PFIZER INC-2007026195

PATIENT
  Sex: Female
  Weight: 60.78 kg

DRUGS (14)
  1. CHANTIX [Suspect]
     Indication: SMOKING CESSATION THERAPY
     Dates: start: 20070101
  2. NEURONTIN [Concomitant]
  3. KLONOPIN [Concomitant]
  4. CYMBALTA [Concomitant]
  5. CARBATROL [Concomitant]
  6. LUNESTA [Concomitant]
  7. ALLEGRA [Concomitant]
  8. SEROQUEL [Concomitant]
  9. FROVA [Concomitant]
  10. ESGIC [Concomitant]
  11. POTASSIUM [Concomitant]
  12. SOMA [Concomitant]
     Indication: ROAD TRAFFIC ACCIDENT
  13. HYDROCODONE BITARTRATE [Concomitant]
     Indication: ROAD TRAFFIC ACCIDENT
  14. AUGMENTIN '125' [Concomitant]

REACTIONS (4)
  - DRUG DEPENDENCE [None]
  - FEELING ABNORMAL [None]
  - HEADACHE [None]
  - MEDICATION ERROR [None]
